FAERS Safety Report 10102802 (Version 1)
Quarter: 2014Q2

REPORT INFORMATION
  Report Type: Spontaneous
  Country: US (occurrence: US)
  Receive Date: 20140424
  Receipt Date: 20140424
  Transmission Date: 20141212
  Serious: No
  Sender: FDA-Public Use
  Company Number: US-BRISTOL-MYERS SQUIBB COMPANY-20548558

PATIENT
  Age: 75 Year
  Sex: Male

DRUGS (4)
  1. ELIQUIS [Suspect]
     Dates: start: 20140107, end: 20140212
  2. DIGOXIN [Suspect]
  3. PRADAXA [Suspect]
  4. XARELTO [Suspect]

REACTIONS (1)
  - Rash [Unknown]
